FAERS Safety Report 4511255-7 (Version None)
Quarter: 2004Q4

REPORT INFORMATION
  Report Type: 
  Country: None (occurrence: None)
  Receive Date: 20041122
  Receipt Date: 20041122
  Transmission Date: 20050328
  Serious: No
  Sender: FDA-Public Use
  Company Number: None

PATIENT
  Age: 51 Year
  Sex: Female

DRUGS (2)
  1. ZYPREXA [Suspect]
     Indication: ACUTE PSYCHOSIS
     Dosage: 10 MG   ONCE INTRAMUSCULAR
     Route: 030
     Dates: start: 20040922, end: 20040922
  2. ZYPREXA [Suspect]
     Indication: CATATONIA
     Dosage: 10 MG   ONCE INTRAMUSCULAR
     Route: 030
     Dates: start: 20040922, end: 20040922

REACTIONS (4)
  - DEHYDRATION [None]
  - HYPOTENSION [None]
  - ORTHOSTATIC HYPOTENSION [None]
  - TACHYCARDIA [None]
